FAERS Safety Report 5873736-3 (Version None)
Quarter: 2008Q3

REPORT INFORMATION
  Report Type: 
  Country: None (occurrence: None)
  Receive Date: 20080904
  Receipt Date: 20080904
  Transmission Date: 20090109
  Serious: Yes (Hospitalization)
  Sender: FDA-Public Use
  Company Number: None

PATIENT
  Age: 70 Year
  Sex: Male

DRUGS (2)
  1. TIMOLOL [Suspect]
     Indication: GLAUCOMA
     Dosage: 1 DROPS EVERY DAY EYE
     Route: 047
     Dates: start: 20061201, end: 20080818
  2. TERAZOSIN HCL [Suspect]
     Indication: BENIGN PROSTATIC HYPERPLASIA
     Dosage: 4 MG AT BEDTIME PO
     Route: 048
     Dates: start: 20080801, end: 20080818

REACTIONS (2)
  - BRADYCARDIA [None]
  - SYNCOPE [None]
